FAERS Safety Report 10475728 (Version 3)
Quarter: 2015Q1

REPORT INFORMATION
  Report Type: Spontaneous
  Country: US (occurrence: US)
  Receive Date: 20140925
  Receipt Date: 20150115
  Transmission Date: 20150720
  Serious: Yes (Other)
  Sender: FDA-Public Use
  Company Number: US-PFIZER INC-2014265264

PATIENT
  Age: 41 Year
  Sex: Female
  Weight: 48.75 kg

DRUGS (2)
  1. LYRICA [Suspect]
     Active Substance: PREGABALIN
     Indication: ANXIETY
     Dosage: 75 MG, 3X/DAY
     Dates: start: 2014
  2. LYRICA [Suspect]
     Active Substance: PREGABALIN
     Indication: FIBROMYALGIA
     Dosage: UNK
     Dates: start: 2009

REACTIONS (5)
  - Road traffic accident [Unknown]
  - Malaise [Unknown]
  - Depression [Unknown]
  - Nasopharyngitis [Unknown]
  - Tenderness [Unknown]
